FAERS Safety Report 6014821-5 (Version None)
Quarter: 2008Q4

REPORT INFORMATION
  Report Type: 
  Country: None (occurrence: None)
  Receive Date: 20081219
  Receipt Date: 20081209
  Transmission Date: 20090506
  Serious: Yes (Hospitalization, Other)
  Sender: FDA-Public Use
  Company Number: US-BAXTER-2008BH013616

PATIENT
  Age: 66 Year
  Sex: Female
  Weight: 109 kg

DRUGS (2)
  1. DIANEAL [Suspect]
     Indication: PERITONEAL DIALYSIS
     Route: 033
  2. DIANEAL [Suspect]
     Indication: PERITONEAL DIALYSIS
     Route: 033

REACTIONS (7)
  - ASTHENIA [None]
  - DIARRHOEA [None]
  - ENTEROCOCCAL INFECTION [None]
  - NAUSEA [None]
  - PERITONITIS BACTERIAL [None]
  - PSEUDOMONAS INFECTION [None]
  - VOMITING [None]
